FAERS Safety Report 4994459-9 (Version None)
Quarter: 2006Q1

REPORT INFORMATION
  Report Type: 
  Country: None (occurrence: None)
  Receive Date: 20060313
  Receipt Date: 20051031
  Transmission Date: 20060701
  Serious: No
  Sender: FDA-Public Use
  Company Number: 2005-BP-18581BP

PATIENT
  Sex: Male

DRUGS (6)
  1. SPIRIVA [Suspect]
     Indication: CHRONIC OBSTRUCTIVE PULMONARY DISEASE
     Dosage: 18 MCG (18 MCG,1 IN 1 D),IH
     Dates: start: 20040801
  2. ADVAIR (SERETIDE) [Concomitant]
  3. SINGULAIR [Concomitant]
  4. PRILOSEC [Concomitant]
  5. VITAMINS (VITAMINS) [Concomitant]
  6. CENTRUM SILVER (CENTRUM SILVER) [Concomitant]

REACTIONS (3)
  - ABDOMINAL PAIN [None]
  - LOCALISED INFECTION [None]
  - OEDEMA PERIPHERAL [None]
